FAERS Safety Report 25024524 (Version 1)
Quarter: 2025Q1

REPORT INFORMATION
  Report Type: Report from Study
  Country: BE (occurrence: BE)
  Receive Date: 20250228
  Receipt Date: 20250228
  Transmission Date: 20250409
  Serious: Yes (Other)
  Sender: ABBVIE
  Company Number: BE-JNJFOC-20181003444

PATIENT
  Age: 77 Year
  Sex: Male

DRUGS (1)
  1. IMBRUVICA [Suspect]
     Active Substance: IBRUTINIB
     Indication: Chronic lymphocytic leukaemia
     Route: 048
     Dates: start: 20170713

REACTIONS (11)
  - Papilloedema [Recovered/Resolved with Sequelae]
  - Cataract [Not Recovered/Not Resolved]
  - Epiretinal membrane [Recovered/Resolved]
  - Onychomycosis [Recovered/Resolved]
  - Rash [Recovered/Resolved]
  - Chest pain [Recovered/Resolved]
  - Productive cough [Not Recovered/Not Resolved]
  - Respiratory tract infection [Recovered/Resolved]
  - Pruritus [Recovered/Resolved]
  - Productive cough [Recovered/Resolved]
  - Erysipelas [Recovered/Resolved]

NARRATIVE: CASE EVENT DATE: 20180214
